FAERS Safety Report 10655385 (Version 1)
Quarter: 2014Q4

REPORT INFORMATION
  Report Type: Spontaneous
  Country: US (occurrence: None)
  Receive Date: 20141215
  Receipt Date: 20141215
  Transmission Date: 20150529
  Serious: Yes (Disabling)
  Sender: FDA-Public Use
  Company Number: None

PATIENT
  Age: 88 Year
  Sex: Male
  Weight: 63.5 kg

DRUGS (1)
  1. SIMVISTATIN [Suspect]
     Active Substance: SIMVASTATIN
     Indication: STENT PLACEMENT
     Dosage: 1 PILL, 1X/DAY
     Route: 048

REACTIONS (10)
  - Memory impairment [None]
  - Gait disturbance [None]
  - Decreased appetite [None]
  - Activities of daily living impaired [None]
  - Balance disorder [None]
  - Hypersomnia [None]
  - Malaise [None]
  - Asthenia [None]
  - Myopathy [None]
  - Cognitive disorder [None]

NARRATIVE: CASE EVENT DATE: 20141207
